FAERS Safety Report 13402734 (Version 1)
Quarter: 2017Q2

REPORT INFORMATION
  Report Type: Spontaneous
  Country: US (occurrence: US)
  Receive Date: 20170404
  Receipt Date: 20170404
  Transmission Date: 20170830
  Serious: No
  Sender: FDA-Public Use
  Company Number: US-ROCHE-1809032

PATIENT
  Sex: Female

DRUGS (4)
  1. ALBUTEROL. [Concomitant]
     Active Substance: ALBUTEROL
  2. ROCEPHIN [Suspect]
     Active Substance: CEFTRIAXONE SODIUM
     Indication: BRONCHIECTASIS
  3. ROCEPHIN [Suspect]
     Active Substance: CEFTRIAXONE SODIUM
     Indication: LUNG INFECTION
     Route: 042
  4. N-ACETYL CYSTEINE [Concomitant]

REACTIONS (3)
  - Paraesthesia oral [Not Recovered/Not Resolved]
  - Lung infection [Not Recovered/Not Resolved]
  - Oral pruritus [Not Recovered/Not Resolved]
